FAERS Safety Report 8467377-1 (Version None)
Quarter: 2012Q2

REPORT INFORMATION
  Report Type: 
  Country: None (occurrence: None)
  Receive Date: 20120626
  Receipt Date: 20120618
  Transmission Date: 20120825
  Serious: Yes (Other)
  Sender: FDA-Public Use
  Company Number: PHHY2012BR042968

PATIENT
  Sex: Female

DRUGS (6)
  1. VYTORIN [Concomitant]
     Indication: BLOOD CHOLESTEROL
     Dosage: 1 DF, DAILY
     Route: 048
  2. METFORMIN HCL [Suspect]
     Indication: DIABETES MELLITUS
     Dosage: (850/50 MG), UNK
  3. CIPROFIBRATE [Concomitant]
     Indication: BLOOD TRIGLYCERIDES
     Dosage: 1 DF, DAILY
  4. PANTOGAR [Concomitant]
     Indication: ALOPECIA
     Dosage: 1 DF, DAILY
  5. CLOPIDOGREL BISULFATE [Concomitant]
     Indication: CEREBROVASCULAR ACCIDENT
     Dosage: 1 DF, DAILY
  6. RASILEZ AMLO [Suspect]
     Dosage: 1 DF, DAILY
     Dates: start: 20110101

REACTIONS (7)
  - OPHTHALMOPLEGIA [None]
  - VISUAL IMPAIRMENT [None]
  - DIABETES MELLITUS INADEQUATE CONTROL [None]
  - CEREBROVASCULAR ACCIDENT [None]
  - COUGH [None]
  - ALOPECIA [None]
  - THROAT IRRITATION [None]
